FAERS Safety Report 18555706 (Version 1)
Quarter: 2020Q4

REPORT INFORMATION
  Report Type: Spontaneous
  Country: US (occurrence: US)
  Receive Date: 20201127
  Receipt Date: 20201127
  Transmission Date: 20210114
  Serious: Yes (Other)
  Sender: FDA-Public Use
  Company Number: US-ASTRAZENECA-2020SF57331

PATIENT
  Sex: Male

DRUGS (4)
  1. NEXIUM [Suspect]
     Active Substance: ESOMEPRAZOLE MAGNESIUM
     Indication: IMMUNE SYSTEM DISORDER
     Dosage: UNK, DAILY
     Route: 048
  2. AURYXIA [Concomitant]
     Active Substance: TETRAFERRIC TRICITRATE DECAHYDRATE
     Dosage: UNK
  3. PHENOBARBITAL. [Concomitant]
     Active Substance: PHENOBARBITAL
     Dosage: UNK
  4. NEXIUM [Suspect]
     Active Substance: ESOMEPRAZOLE MAGNESIUM
     Indication: PHARYNGEAL DISORDER
     Dosage: UNK, DAILY
     Route: 048

REACTIONS (7)
  - Scleroderma [Unknown]
  - Product use in unapproved indication [Unknown]
  - Off label use [Unknown]
  - Blood phosphorus increased [Unknown]
  - Vomiting [Unknown]
  - Bowel movement irregularity [Unknown]
  - Seizure [Unknown]
